FAERS Safety Report 16070089 (Version 9)
Quarter: 2021Q2

REPORT INFORMATION
  Report Type: Spontaneous
  Country: JP (occurrence: JP)
  Receive Date: 20190314
  Receipt Date: 20210621
  Transmission Date: 20210716
  Serious: Yes (Other)
  Sender: FDA-Public Use
  Company Number: JP-BRISTOL-MYERS SQUIBB COMPANY-BMS-2019-001261

PATIENT
  Age: 64 Year
  Sex: Female
  Weight: 40 kg

DRUGS (3)
  1. OPDIVO [Suspect]
     Active Substance: NIVOLUMAB
     Indication: METASTATIC RENAL CELL CARCINOMA
     Dosage: 240 MILLIGRAM, Q3WK
     Route: 041
     Dates: start: 20181207, end: 20190212
  2. KLARICID [CLARITHROMYCIN] [Suspect]
     Active Substance: CLARITHROMYCIN
     Indication: HEPATIC FUNCTION ABNORMAL
     Dosage: 200 MILLIGRAM, BID, Q12H
     Route: 048
     Dates: start: 20181228, end: 20190108
  3. YERVOY [Suspect]
     Active Substance: IPILIMUMAB
     Indication: METASTATIC RENAL CELL CARCINOMA
     Dosage: 35 MILLIGRAM, Q3WK
     Route: 041
     Dates: start: 20181207, end: 20190212

REACTIONS (6)
  - Eosinophilic pneumonia [Recovered/Resolved]
  - Hepatic function abnormal [Recovered/Resolved]
  - Gastroenteritis eosinophilic [Recovered/Resolved]
  - Drug reaction with eosinophilia and systemic symptoms [Recovering/Resolving]
  - Diarrhoea [Recovered/Resolved]
  - Eosinophilia [Recovering/Resolving]

NARRATIVE: CASE EVENT DATE: 20190108
